FAERS Safety Report 14012689 (Version 2)
Quarter: 2019Q2

REPORT INFORMATION
  Report Type: Spontaneous
  Country: US (occurrence: US)
  Receive Date: 20170926
  Receipt Date: 20190409
  Transmission Date: 20190711
  Serious: No
  Sender: FDA-Public Use
  Company Number: US-SHIRE-US201722466

PATIENT
  Age: 52 Year

DRUGS (1)
  1. MYDAYIS [Suspect]
     Active Substance: AMPHETAMINE ASPARTATE\AMPHETAMINE SULFATE\DEXTROAMPHETAMINE SACCHARATE\DEXTROAMPHETAMINE SULFATE
     Indication: ATTENTION DEFICIT/HYPERACTIVITY DISORDER
     Dosage: 25 MG, 1X/DAY:QD
     Route: 048
     Dates: start: 2005

REACTIONS (4)
  - Bladder disorder [Unknown]
  - Drug ineffective [Unknown]
  - Headache [Unknown]
  - Hypokinesia [Unknown]
